FAERS Safety Report 25750464 (Version 1)
Quarter: 2025Q3

REPORT INFORMATION
  Report Type: Spontaneous
  Country: EU (occurrence: EU)
  Receive Date: 20250902
  Receipt Date: 20250902
  Transmission Date: 20251021
  Serious: Yes (Hospitalization)
  Sender: MYLAN
  Company Number: None

PATIENT
  Age: 26 Year
  Sex: Female
  Weight: 48 kg

DRUGS (5)
  1. ZOLEDRONIC ACID [Suspect]
     Active Substance: ZOLEDRONIC ACID
     Indication: Hypercalcaemia
     Dosage: 5 MICROGRAM, QD
     Dates: start: 20250526, end: 20250526
  2. CALTRATE WITH VITAMIN D [Suspect]
     Active Substance: CALCIUM CARBONATE\CHOLECALCIFEROL
     Indication: Pseudohypoparathyroidism
     Dosage: 2 DOSAGE FORM, QD (600 MG/400 IU, SCORED FILM-COATED TABLET)
     Dates: end: 20250526
  3. ALFACALCIDOL [Suspect]
     Active Substance: ALFACALCIDOL
     Indication: Pseudohypoparathyroidism
     Dosage: 5 MICROGRAM, QD
     Dates: end: 20250526
  4. LEVOTHYROXINE [Concomitant]
     Active Substance: LEVOTHYROXINE
     Indication: Pseudohypoparathyroidism
     Dosage: 50 MICROGRAM, QD
  5. ALPRAZOLAM [Concomitant]
     Active Substance: ALPRAZOLAM
     Indication: Pseudohypoparathyroidism
     Dosage: 0.5 MILLIGRAM, QD

REACTIONS (2)
  - Hypercalcaemia [Recovered/Resolved]
  - Sensorimotor disorder [Recovered/Resolved]

NARRATIVE: CASE EVENT DATE: 20250523
